FAERS Safety Report 5507056-3 (Version None)
Quarter: 2007Q4

REPORT INFORMATION
  Report Type: 
  Country: None (occurrence: None)
  Receive Date: 20071105
  Receipt Date: 20071012
  Transmission Date: 20080405
  Serious: No
  Sender: FDA-Public Use
  Company Number: US-BOEHRINGER INGELHEIM PHARMACEUTICALS, INC.-2007-BP-20222BP

PATIENT
  Age: 73 Year
  Sex: Female

DRUGS (3)
  1. ATROVENT HFA [Suspect]
     Indication: DYSPNOEA
     Route: 055
  2. FOSAMAX [Concomitant]
  3. TYLENOL (CAPLET) [Concomitant]

REACTIONS (2)
  - DYSGEUSIA [None]
  - DYSPNOEA [None]
